FAERS Safety Report 7814790-9 (Version None)
Quarter: 2011Q4

REPORT INFORMATION
  Report Type: 
  Country: None (occurrence: None)
  Receive Date: 20111014
  Receipt Date: 20110928
  Transmission Date: 20120403
  Serious: Yes (Other)
  Sender: FDA-Public Use
  Company Number: US-ROCHE-672120

PATIENT

DRUGS (3)
  1. AVASTIN [Suspect]
     Indication: NON-SMALL CELL LUNG CANCER
     Dosage: ON DAY 1 OF EACH CYCLE
     Route: 042
  2. PACLITAXEL [Suspect]
     Indication: NON-SMALL CELL LUNG CANCER
     Dosage: ON DAY 1 OF EACH 3 WEEK CYCLE.
     Route: 042
  3. CARBOPLATIN [Suspect]
     Indication: NON-SMALL CELL LUNG CANCER
     Dosage: AUC OF 6MG/ML/MIN, ON DAY 1 OF EACH 3 WEEK CYCLE.
     Route: 042

REACTIONS (21)
  - PULMONARY EMBOLISM [None]
  - WEIGHT DECREASED [None]
  - NEUTROPENIA [None]
  - DEEP VEIN THROMBOSIS [None]
  - NEUROPATHY PERIPHERAL [None]
  - CARDIAC FAILURE CONGESTIVE [None]
  - DIARRHOEA [None]
  - CONSTIPATION [None]
  - VOMITING [None]
  - ALOPECIA [None]
  - DYSPNOEA [None]
  - ANAEMIA [None]
  - DECREASED APPETITE [None]
  - FATIGUE [None]
  - ASTHENIA [None]
  - CARDIOTOXICITY [None]
  - HYPERTENSION [None]
  - ABDOMINAL PAIN [None]
  - ARTHRALGIA [None]
  - NAUSEA [None]
  - DEHYDRATION [None]
